FAERS Safety Report 6836092-X (Version None)
Quarter: 2010Q3

REPORT INFORMATION
  Report Type: 
  Country: None (occurrence: None)
  Receive Date: 20100713
  Receipt Date: 20100701
  Transmission Date: 20110219
  Serious: Yes (Hospitalization)
  Sender: FDA-Public Use
  Company Number: US-ROCHE-696628

PATIENT
  Sex: Male
  Weight: 60 kg

DRUGS (11)
  1. BEVACIZUMAB [Suspect]
     Dosage: 10 MG/KG, Q2W
     Route: 042
     Dates: start: 20100301, end: 20100329
  2. BEVACIZUMAB [Suspect]
     Dosage: 10 MG, Q2W
     Route: 042
     Dates: start: 20100301, end: 20100329
  3. ANTI-EGFL7 [Suspect]
     Dosage: 2.0 MG/KG, Q2W
     Route: 042
     Dates: start: 20100301, end: 20100329
  4. ANTI-EGFL7 [Suspect]
     Dosage: 2.0 MG/KG, Q2W
     Route: 042
     Dates: start: 20100301, end: 20100329
  5. PROTONIX [Concomitant]
     Indication: PRODUCT USED FOR UNKNOWN INDICATION
     Dosage: 40 MG, QD
  6. SYNTHROID [Concomitant]
     Indication: PRODUCT USED FOR UNKNOWN INDICATION
  7. CELEBREX [Concomitant]
     Indication: PRODUCT USED FOR UNKNOWN INDICATION
     Dosage: 200 MG, QD
  8. LYRICA [Concomitant]
     Indication: PRODUCT USED FOR UNKNOWN INDICATION
     Dosage: 75 MG, QAM
  9. LYRICA [Concomitant]
     Dosage: 150 MG, QPM
  10. FENTANYL-75 [Concomitant]
     Indication: PRODUCT USED FOR UNKNOWN INDICATION
     Dosage: 50 MCG/HR, Q3D
  11. DILAUDID [Concomitant]

REACTIONS (1)
  - MALLORY-WEISS SYNDROME [None]
